FAERS Safety Report 10177068 (Version 1)
Quarter: 2014Q2

REPORT INFORMATION
  Report Type: Spontaneous
  Country: US (occurrence: None)
  Receive Date: 20140515
  Receipt Date: 20140515
  Transmission Date: 20141212
  Serious: No
  Sender: FDA-Public Use
  Company Number: None

PATIENT
  Age: 74 Year
  Sex: Female

DRUGS (4)
  1. STELARA [Suspect]
     Indication: PSORIASIS
     Dosage: Q 3 MONTHS, SQ
  2. OXYCODONE-ACETAMINOPHEN [Concomitant]
  3. KETOCONAZOLE SHAMPOO [Concomitant]
  4. CAPEX SHAMPOO (FLUOCINOLONE ACETONIDE) TOPICAL SHAMPOO, 0.01% [Concomitant]

REACTIONS (2)
  - Self-medication [None]
  - Inappropriate schedule of drug administration [None]
